FAERS Safety Report 7344061-9 (Version None)
Quarter: 2011Q1

REPORT INFORMATION
  Report Type: 
  Country: None (occurrence: None)
  Receive Date: 20110310
  Receipt Date: 20100523
  Transmission Date: 20110831
  Serious: No
  Sender: FDA-Public Use
  Company Number: A0860958A

PATIENT
  Age: 48 Year
  Sex: Female

DRUGS (1)
  1. NICORETTE [Suspect]

REACTIONS (4)
  - OROPHARYNGEAL PAIN [None]
  - DYSPHAGIA [None]
  - PHARYNGEAL OEDEMA [None]
  - HYPERSENSITIVITY [None]
